FAERS Safety Report 12708132 (Version 1)
Quarter: 2016Q3

REPORT INFORMATION
  Report Type: Spontaneous
  Country: DE (occurrence: DE)
  Receive Date: 20160901
  Receipt Date: 20160901
  Transmission Date: 20161109
  Serious: Yes (Other)
  Sender: FDA-Public Use
  Company Number: DE-KADMON PHARMACEUTICALS, LLC-KAD201608-003194

PATIENT
  Age: 94 Year
  Sex: Male

DRUGS (6)
  1. RIBAVIRIN. [Suspect]
     Active Substance: RIBAVIRIN
     Indication: HEPATITIS C
     Dates: start: 20160114, end: 20160410
  2. TORASEMIDE [Concomitant]
     Active Substance: TORSEMIDE
  3. TEBONIN [Concomitant]
     Active Substance: GINKGO
  4. METOPROLOL. [Concomitant]
     Active Substance: METOPROLOL
  5. VIEKIRAX [Suspect]
     Active Substance: OMBITASVIR\PARITAPREVIR\RITONAVIR
     Indication: HEPATITIS C
     Route: 048
     Dates: start: 20160114, end: 20160410
  6. LEVOTHYROXINE. [Concomitant]
     Active Substance: LEVOTHYROXINE

REACTIONS (2)
  - Cognitive disorder [Unknown]
  - Femoral neck fracture [Unknown]

NARRATIVE: CASE EVENT DATE: 20160803
